FAERS Safety Report 4585360-3 (Version None)
Quarter: 2005Q1

REPORT INFORMATION
  Report Type: 
  Country: None (occurrence: None)
  Receive Date: 20050217
  Receipt Date: 20050210
  Transmission Date: 20050727
  Serious: Yes (Other)
  Sender: FDA-Public Use
  Company Number: 200510352EU

PATIENT
  Age: 43 Year
  Sex: Female

DRUGS (2)
  1. FLAGYL [Suspect]
     Indication: BRAIN ABSCESS
     Route: 048
     Dates: start: 20040524, end: 20040815
  2. BACTRIM FORTE [Concomitant]
     Indication: BRAIN ABSCESS
     Route: 048

REACTIONS (7)
  - EPIGASTRIC DISCOMFORT [None]
  - HYPOAESTHESIA [None]
  - NAUSEA [None]
  - PARAESTHESIA [None]
  - POLYNEUROPATHY [None]
  - SENSORY DISTURBANCE [None]
  - VIBRATION TEST ABNORMAL [None]
